FAERS Safety Report 23567229 (Version 4)
Quarter: 2024Q1

REPORT INFORMATION
  Report Type: Spontaneous
  Country: US (occurrence: US)
  Receive Date: 20240226
  Receipt Date: 20240328
  Transmission Date: 20240409
  Serious: Yes (Hospitalization, Other)
  Sender: FDA-Public Use
  Company Number: US-PFIZER INC-202400049410

PATIENT
  Age: 14 Year
  Sex: Male

DRUGS (1)
  1. OXBRYTA [Suspect]
     Active Substance: VOXELOTOR
     Indication: Sickle cell disease
     Dosage: 3 TABLETS ONCE DAILY
     Route: 048
     Dates: start: 20231208

REACTIONS (5)
  - Sickle cell anaemia with crisis [Unknown]
  - Pyrexia [Unknown]
  - Pain [Unknown]
  - Transfusion [Unknown]
  - Haemoglobin decreased [Unknown]
